FAERS Safety Report 16009509 (Version 2)
Quarter: 2019Q2

REPORT INFORMATION
  Report Type: Spontaneous
  Country: JP (occurrence: JP)
  Receive Date: 20190225
  Receipt Date: 20190405
  Transmission Date: 20190711
  Serious: Yes (Death, Hospitalization, Other)
  Sender: FDA-Public Use
  Company Number: JP-BRISTOL-MYERS SQUIBB COMPANY-BMS-2018-097839

PATIENT
  Age: 51 Year
  Sex: Male
  Weight: 57.5 kg

DRUGS (2)
  1. OPDIVO [Suspect]
     Active Substance: NIVOLUMAB
     Indication: HEAD AND NECK CANCER
     Dosage: 3 MG/KG, UNK
     Route: 041
     Dates: start: 20180514, end: 2018
  2. OPDIVO [Suspect]
     Active Substance: NIVOLUMAB
     Indication: PRODUCT USED FOR UNKNOWN INDICATION
     Dosage: 240 MG, UNK
     Route: 041
     Dates: start: 20180918, end: 20180918

REACTIONS (3)
  - Disseminated intravascular coagulation [Fatal]
  - Metastases to liver [Unknown]
  - Interstitial lung disease [Fatal]

NARRATIVE: CASE EVENT DATE: 20180921
